FAERS Safety Report 6986225-X (Version None)
Quarter: 2010Q3

REPORT INFORMATION
  Report Type: 
  Country: None (occurrence: None)
  Receive Date: 20100915
  Receipt Date: 20090612
  Transmission Date: 20110219
  Serious: No
  Sender: FDA-Public Use
  Company Number: US-WYE-H09746409

PATIENT
  Sex: Female

DRUGS (6)
  1. PRISTIQ [Suspect]
     Indication: DEPRESSION
     Route: 048
     Dates: start: 20080501, end: 20081201
  2. PRISTIQ [Suspect]
     Route: 048
     Dates: start: 20081201
  3. VYVANSE [Concomitant]
  4. KLONOPIN [Concomitant]
  5. PREMARIN [Concomitant]
  6. LAMICTAL [Concomitant]

REACTIONS (1)
  - HYPERHIDROSIS [None]
